FAERS Safety Report 6712337-1 (Version None)
Quarter: 2010Q2

REPORT INFORMATION
  Report Type: 
  Country: None (occurrence: None)
  Receive Date: 20100505
  Receipt Date: 20100423
  Transmission Date: 20101027
  Serious: Yes (Hospitalization)
  Sender: FDA-Public Use
  Company Number: DE-ELI_LILLY_AND_COMPANY-DE201004006208

PATIENT
  Sex: Female

DRUGS (3)
  1. FORTEO [Suspect]
     Indication: OSTEOPOROSIS
     Dosage: UNK, UNKNOWN
     Route: 058
     Dates: start: 20100116
  2. VALPROATE SODIUM [Concomitant]
     Dosage: UNK, UNKNOWN
  3. MARCUMAR [Concomitant]
     Dosage: UNK, UNKNOWN

REACTIONS (4)
  - ARRHYTHMIA [None]
  - BLOOD PRESSURE ABNORMAL [None]
  - CONVULSION [None]
  - NAUSEA [None]
